FAERS Safety Report 9266331 (Version 1)
Quarter: 2013Q2

REPORT INFORMATION
  Report Type: Report from Study
  Country: US (occurrence: US)
  Receive Date: 20130502
  Receipt Date: 20130502
  Transmission Date: 20140414
  Serious: Yes (Other)
  Sender: FDA-Public Use
  Company Number: US-ACCORD-017424

PATIENT
  Sex: 0

DRUGS (5)
  1. ETOPOSIDE [Suspect]
     Indication: MEDULLOBLASTOMA
     Dosage: 50 MG/M2 DAY
     Route: 048
  2. CISPLATIN [Suspect]
     Indication: MEDULLOBLASTOMA
  3. VINCRISTINE [Suspect]
     Indication: MEDULLOBLASTOMA
     Dosage: RECEIVED FOUR CYCLES 1.5 MG/M2/DOSE WEEKLY
  4. CYCLOPHOSPHAMIDE [Suspect]
     Indication: MEDULLOBLASTOMA
     Dosage: SEVEN CYCLES OF 1 G/M2 ON DAYS 1 AND 2 OF CSI
     Route: 042
  5. GRANULOCYTE COLONY STIMULATING FACT [Concomitant]

REACTIONS (4)
  - Neutropenia [Unknown]
  - Anaemia [Unknown]
  - Ototoxicity [Unknown]
  - Off label use [Unknown]
